FAERS Safety Report 8574963-7 (Version None)
Quarter: 2012Q2

REPORT INFORMATION
  Report Type: 
  Country: None (occurrence: None)
  Receive Date: 20120423
  Receipt Date: 20101026
  Transmission Date: 20120825
  Serious: Yes (Other)
  Sender: FDA-Public Use
  Company Number: PHEH2010US03622

PATIENT
  Age: 12 Year
  Sex: Male

DRUGS (1)
  1. EXJADE [Suspect]
     Dosage: 750 MG, QD, ORAL
     Route: 048

REACTIONS (4)
  - NAUSEA [None]
  - VOMITING [None]
  - THROAT IRRITATION [None]
  - RETCHING [None]
